FAERS Safety Report 8313188-7 (Version None)
Quarter: 2012Q2

REPORT INFORMATION
  Report Type: 
  Country: None (occurrence: None)
  Receive Date: 20120424
  Receipt Date: 20120410
  Transmission Date: 20120825
  Serious: Yes (Other)
  Sender: FDA-Public Use
  Company Number: US-2012-10074

PATIENT
  Age: 42 Year
  Sex: Female

DRUGS (4)
  1. OPC-41061 (TOLVAPTAN) TABLET, 15MG MILLIGRAM(S) [Suspect]
     Indication: CONGENITAL CYSTIC KIDNEY DISEASE
     Dosage: 45/15 MG, ORAL
     Route: 048
     Dates: start: 20111206, end: 20120123
  2. CARVEDILOL [Concomitant]
  3. RAMIPRIL [Concomitant]
  4. DIOVAN [Concomitant]

REACTIONS (3)
  - UPPER RESPIRATORY TRACT INFECTION [None]
  - ASTHMA [None]
  - INCONTINENCE [None]
